FAERS Safety Report 13403545 (Version 5)
Quarter: 2018Q4

REPORT INFORMATION
  Report Type: Spontaneous
  Country: IE (occurrence: IE)
  Receive Date: 20170405
  Receipt Date: 20181010
  Transmission Date: 20190204
  Serious: Yes (Life-Threatening, Hospitalization, Other)
  Sender: FDA-Public Use
  Company Number: IE-PFIZER INC-2017142131

PATIENT
  Age: 52 Year
  Sex: Female

DRUGS (2)
  1. ROCURONIUM BROMIDE. [Suspect]
     Active Substance: ROCURONIUM BROMIDE
     Indication: HYPOVENTILATION
  2. ROCURONIUM BROMIDE. [Suspect]
     Active Substance: ROCURONIUM BROMIDE
     Indication: OPEN REDUCTION OF FRACTURE
     Dosage: UNK

REACTIONS (6)
  - Respiratory arrest [Recovering/Resolving]
  - Drug ineffective [Recovered/Resolved]
  - Peripheral circulatory failure [Recovering/Resolving]
  - Anaphylactic reaction [Recovering/Resolving]
  - Hypotension [Recovered/Resolved]
  - Bradycardia [Recovering/Resolving]
